FAERS Safety Report 4350416-7 (Version None)
Quarter: 2004Q2

REPORT INFORMATION
  Report Type: 
  Country: None (occurrence: None)
  Receive Date: 20040427
  Receipt Date: 20040415
  Transmission Date: 20050107
  Serious: Yes (Other)
  Sender: FDA-Public Use
  Company Number: 2004026288

PATIENT
  Age: 61 Year
  Sex: Female

DRUGS (4)
  1. TIKOSYN [Suspect]
     Indication: ATRIAL FIBRILLATION
     Dosage: 500 MCG (BID) ORAL
     Route: 048
     Dates: start: 20040310
  2. DILTIAZEM HYDROCHLORIDE [Concomitant]
  3. WARFARIN SODIUM [Concomitant]
  4. HEPARIN-FRACTION, SODIUM SALT (HEPARIN-FRACTION, SODIUM SALT) [Concomitant]

REACTIONS (2)
  - CHEST PAIN [None]
  - PERICARDITIS [None]
